FAERS Safety Report 15156897 (Version 1)
Quarter: 2018Q3

REPORT INFORMATION
  Report Type: Spontaneous
  Country: FR (occurrence: FR)
  Receive Date: 20180718
  Receipt Date: 20180718
  Transmission Date: 20181010
  Serious: Yes (Hospitalization)
  Sender: FDA-Public Use
  Company Number: FR-SUN PHARMACEUTICAL INDUSTRIES LTD-2018RR-178631

PATIENT
  Age: 19 Year
  Sex: Female
  Weight: 56 kg

DRUGS (3)
  1. ANTADYS [Interacting]
     Active Substance: FLURBIPROFEN
     Indication: PELVIC PAIN
     Dosage: ()
     Route: 048
     Dates: start: 20180528, end: 20180531
  2. DUPHASTON [Suspect]
     Active Substance: DYDROGESTERONE
     Indication: MENSTRUAL DISORDER
     Dosage: A PARTIR DU 16AME JOUR POST REGLES ; CYCLICAL
     Route: 048
     Dates: end: 20180531
  3. IBUPROFENE [Suspect]
     Active Substance: IBUPROFEN
     Indication: PAIN
     Dosage: 1 DF, UNK
     Route: 048
     Dates: end: 20180531

REACTIONS (4)
  - Hepatocellular injury [Recovering/Resolving]
  - Abdominal pain upper [Recovered/Resolved]
  - Diarrhoea [Recovered/Resolved]
  - Vomiting [Recovered/Resolved]

NARRATIVE: CASE EVENT DATE: 20180530
